FAERS Safety Report 5940043-X (Version None)
Quarter: 2008Q4

REPORT INFORMATION
  Report Type: 
  Country: None (occurrence: None)
  Receive Date: 20081104
  Receipt Date: 20081026
  Transmission Date: 20090506
  Serious: Yes (Disabling, Other)
  Sender: FDA-Public Use
  Company Number: PHHY2008CA25260

PATIENT
  Sex: Male

DRUGS (9)
  1. DIOVAN [Suspect]
     Indication: HYPERTENSION
     Dosage: 80 MG, QD
     Route: 048
     Dates: start: 20080515
  2. METFORMIN HCL [Concomitant]
  3. GLYBURIDE [Concomitant]
  4. ALLOPURINOL [Concomitant]
  5. HYTRIN [Concomitant]
  6. ADALAT CC [Concomitant]
  7. FLUVOXAMINE MALEATE [Concomitant]
  8. VITAMIN B-12 [Concomitant]
  9. TECAZOLIN [Concomitant]

REACTIONS (2)
  - BLINDNESS [None]
  - SCOTOMA [None]
